FAERS Safety Report 8809083 (Version 1)
Quarter: 2012Q4

REPORT INFORMATION
  Report Type: 
  Country: US (occurrence: US)
  Receive Date: 20120926
  Receipt Date: 20120926
  Transmission Date: 20130627
  Serious: No
  Sender: FDA-Public Use
  Company Number: US-JNJFOC-20120900524

PATIENT
  Sex: Female

DRUGS (3)
  1. INVEGA SUSTENNA [Suspect]
     Indication: PRODUCT USED FOR UNKNOWN INDICATION
     Route: 030
  2. TRAZODONE [Concomitant]
     Route: 048
     Dates: start: 20120821
  3. COGENTIN [Concomitant]
     Route: 048

REACTIONS (2)
  - Galactorrhoea [Unknown]
  - Exposure during pregnancy [Unknown]
